FAERS Safety Report 5922583-2 (Version None)
Quarter: 2008Q4

REPORT INFORMATION
  Report Type: 
  Country: None (occurrence: None)
  Receive Date: 20081017
  Receipt Date: 20081009
  Transmission Date: 20090506
  Serious: Yes (Other)
  Sender: FDA-Public Use
  Company Number: PHBS2008US06001

PATIENT
  Age: 36 Year
  Sex: Female

DRUGS (2)
  1. BACLOFEN [Suspect]
     Indication: STIFF-MAN SYNDROME
     Dosage: 20 MG, QID
     Route: 065
  2. DIAZEPAM [Suspect]
     Indication: STIFF-MAN SYNDROME
     Dosage: 10 MG, TID
     Route: 065

REACTIONS (1)
  - STIFF-MAN SYNDROME [None]
